FAERS Safety Report 26014553 (Version 1)
Quarter: 2025Q4

REPORT INFORMATION
  Report Type: Spontaneous
  Country: US (occurrence: US)
  Receive Date: 20251108
  Receipt Date: 20251108
  Transmission Date: 20260117
  Serious: No
  Sender: CSL BEHRING
  Company Number: US-BEH-2025224170

PATIENT
  Sex: Male

DRUGS (1)
  1. HIZENTRA [Suspect]
     Active Substance: HUMAN IMMUNOGLOBULIN G
     Indication: Immunodeficiency common variable
     Dosage: 16 G
     Route: 058
     Dates: start: 202502

REACTIONS (1)
  - Decreased appetite [Unknown]
